FAERS Safety Report 6632184-9 (Version None)
Quarter: 2010Q1

REPORT INFORMATION
  Report Type: 
  Country: None (occurrence: None)
  Receive Date: 20100312
  Receipt Date: 20100303
  Transmission Date: 20100710
  Serious: Yes (Life-Threatening, Hospitalization)
  Sender: FDA-Public Use
  Company Number: FR-SANOFI-AVENTIS-2010SA012307

PATIENT

DRUGS (3)
  1. BETAXOLOL HYDROCHLORIDE [Suspect]
     Route: 065
  2. VERAPAMIL [Suspect]
     Route: 065
  3. PROPRANOLOL HYDROCHLORIDE [Suspect]
     Route: 065

REACTIONS (4)
  - BLOOD LACTIC ACID INCREASED [None]
  - CARDIAC ARREST [None]
  - COMA [None]
  - MULTIPLE DRUG OVERDOSE [None]
